FAERS Safety Report 14624200 (Version 1)
Quarter: 2018Q1

REPORT INFORMATION
  Report Type: Report from Study
  Country: None (occurrence: RO)
  Receive Date: 20180312
  Receipt Date: 20180312
  Transmission Date: 20180509
  Serious: Yes (Other)
  Sender: FDA-Public Use
  Company Number: RO-ABBVIE-18K-135-2282722-00

PATIENT
  Sex: Female

DRUGS (1)
  1. DUODOPA [Suspect]
     Active Substance: CARBIDOPA\LEVODOPA
     Indication: PARKINSON^S DISEASE
     Dosage: MD=11.00??CD=3.00??ED=1.50??NR ED=0
     Route: 050
     Dates: start: 20171005, end: 20180306

REACTIONS (5)
  - Nausea [Unknown]
  - Vertigo [Unknown]
  - Respiratory failure [Unknown]
  - Abdominal pain [Unknown]
  - Vomiting [Unknown]
